FAERS Safety Report 7910132-9 (Version None)
Quarter: 2011Q4

REPORT INFORMATION
  Report Type: 
  Country: None (occurrence: None)
  Receive Date: 20111111
  Receipt Date: 20111102
  Transmission Date: 20120403
  Serious: Yes (Other)
  Sender: FDA-Public Use
  Company Number: PHHY2011SK97037

PATIENT
  Age: 62 Year
  Sex: Male

DRUGS (1)
  1. WARFARIN SODIUM [Suspect]
     Indication: CORONARY ARTERY DISEASE
     Dosage: 5 MG, UNK

REACTIONS (10)
  - INFECTIOUS PERITONITIS [None]
  - INTERNATIONAL NORMALISED RATIO INCREASED [None]
  - ADENOCARCINOMA [None]
  - INFLAMMATION [None]
  - ABDOMINAL PAIN [None]
  - ALKALOSIS HYPOKALAEMIC [None]
  - COLITIS ISCHAEMIC [None]
  - ILEUS [None]
  - HYPOCOAGULABLE STATE [None]
  - COLONIC HAEMATOMA [None]
